FAERS Safety Report 7990767-8 (Version None)
Quarter: 2011Q4

REPORT INFORMATION
  Report Type: 
  Country: None (occurrence: None)
  Receive Date: 20111219
  Receipt Date: 20111219
  Transmission Date: 20120403
  Serious: Yes (Other)
  Sender: FDA-Public Use
  Company Number: None

PATIENT
  Age: 40 Year
  Sex: Female
  Weight: 63.502 kg

DRUGS (1)
  1. BUPROPION HCL [Suspect]
     Indication: ATTENTION DEFICIT/HYPERACTIVITY DISORDER
     Dosage: 1 TAB
     Route: 048
     Dates: start: 20111213, end: 20111217

REACTIONS (3)
  - HUNGER [None]
  - FATIGUE [None]
  - PRODUCT SUBSTITUTION ISSUE [None]
